FAERS Safety Report 6306811-X (Version None)
Quarter: 2009Q3

REPORT INFORMATION
  Report Type: 
  Country: None (occurrence: None)
  Receive Date: 20090811
  Receipt Date: 20090811
  Transmission Date: 20100115
  Serious: Yes (Other)
  Sender: FDA-Public Use
  Company Number: None

PATIENT
  Sex: Female
  Weight: 77.1115 kg

DRUGS (1)
  1. TOPAMAX [Suspect]
     Indication: MIGRAINE
     Dosage: 1 AM 2 PM
     Dates: start: 20090101

REACTIONS (3)
  - HEADACHE [None]
  - PRODUCT SUBSTITUTION ISSUE [None]
  - VERTIGO [None]
